FAERS Safety Report 5776819-1 (Version None)
Quarter: 2008Q2

REPORT INFORMATION
  Report Type: 
  Country: None (occurrence: None)
  Receive Date: 20080601
  Receipt Date: 20080130
  Transmission Date: 20081010
  Serious: No
  Sender: FDA-Public Use
  Company Number: US200712002201

PATIENT
  Age: 64 Year
  Sex: Male
  Weight: 132.9 kg

DRUGS (5)
  1. BYETTA [Suspect]
     Indication: TYPE 2 DIABETES MELLITUS
     Dosage: 10 UG, 2/D, SUBCUTANEOUS
     Route: 058
     Dates: start: 20070601
  2. METFORMIN HCL [Concomitant]
  3. AVANDIA [Concomitant]
  4. GLIMEPIRIDE [Concomitant]
  5. FISH OIL (FISH OIL) [Concomitant]

REACTIONS (7)
  - BLOOD GLUCOSE INCREASED [None]
  - DECREASED APPETITE [None]
  - DIZZINESS [None]
  - FATIGUE [None]
  - LABORATORY TEST ABNORMAL [None]
  - NAUSEA [None]
  - WEIGHT DECREASED [None]
